FAERS Safety Report 13839369 (Version 1)
Quarter: 2017Q3

REPORT INFORMATION
  Report Type: Spontaneous
  Country: US (occurrence: US)
  Receive Date: 20170805
  Receipt Date: 20170805
  Transmission Date: 20171127
  Serious: Yes (Hospitalization)
  Sender: FDA-Public Use
  Company Number: None

PATIENT
  Age: 40 Year
  Sex: Male

DRUGS (23)
  1. SIMETHICONE (DIMETHICONE) [Concomitant]
     Active Substance: DIMETHICONE
  2. VITAMIN E [Concomitant]
     Active Substance: .ALPHA.-TOCOPHEROL
  3. METHOTREXATE. [Suspect]
     Active Substance: METHOTREXATE
     Indication: PROPHYLAXIS AGAINST GRAFT VERSUS HOST DISEASE
     Dosage: DOSE - 15MG/M2, 10MG/M2
     Route: 042
     Dates: start: 20170415, end: 20170417
  4. ACYCLOVIR. [Concomitant]
     Active Substance: ACYCLOVIR
  5. ALPRAZOLAM. [Concomitant]
     Active Substance: ALPRAZOLAM
  6. ALUMINUM HYDROXIDE. [Concomitant]
     Active Substance: ALUMINUM HYDROXIDE
  7. GABAPENTIN. [Concomitant]
     Active Substance: GABAPENTIN
  8. SUCRALFATE. [Concomitant]
     Active Substance: SUCRALFATE
  9. TACROLIMUS. [Concomitant]
     Active Substance: TACROLIMUS
  10. GLUTAMINE [Concomitant]
     Active Substance: GLUTAMINE
  11. MULTIVITAMIN [Concomitant]
     Active Substance: VITAMINS
  12. MUPIROCIN. [Concomitant]
     Active Substance: MUPIROCIN
  13. PROCHLORPERAZINE. [Concomitant]
     Active Substance: PROCHLORPERAZINE
  14. EMOLLIENT CREAM [Concomitant]
  15. ONDANSETRON [Suspect]
     Active Substance: ONDANSETRON
  16. TRIAMCINOLONE ACETONIDE. [Concomitant]
     Active Substance: TRIAMCINOLONE ACETONIDE
  17. CHLORHEXADINE [Concomitant]
     Active Substance: CHLORHEXIDINE
  18. FAMOTIDINE. [Concomitant]
     Active Substance: FAMOTIDINE
  19. OXYCODONE [Concomitant]
     Active Substance: OXYCODONE
  20. CEFEPIME [Concomitant]
     Active Substance: CEFEPIME HYDROCHLORIDE
  21. FLUCONAZOLE. [Concomitant]
     Active Substance: FLUCONAZOLE
  22. FLUORIDE TOPICAL GEL TREATMENT [Concomitant]
     Active Substance: SODIUM FLUORIDE
  23. SERTRALINE [Concomitant]
     Active Substance: SERTRALINE HYDROCHLORIDE

REACTIONS (2)
  - Mucosal inflammation [None]
  - Neutrophil count decreased [None]

NARRATIVE: CASE EVENT DATE: 20170418
